FAERS Safety Report 22362120 (Version 1)
Quarter: 2023Q2

REPORT INFORMATION
  Report Type: Spontaneous
  Country: US (occurrence: US)
  Receive Date: 20230524
  Receipt Date: 20230524
  Transmission Date: 20230722
  Serious: No
  Sender: FDA-Public Use
  Company Number: US-GLAXOSMITHKLINE-USCH2023024477

PATIENT
  Age: 61 Year
  Sex: Female

DRUGS (1)
  1. ALLI [Suspect]
     Active Substance: ORLISTAT
     Indication: Weight control
     Dosage: 2 DF
     Dates: start: 20230522

REACTIONS (2)
  - Extra dose administered [Unknown]
  - Drug ineffective [Unknown]
